FAERS Safety Report 25815285 (Version 1)
Quarter: 2025Q3

REPORT INFORMATION
  Report Type: Spontaneous
  Country: US (occurrence: US)
  Receive Date: 20250918
  Receipt Date: 20250918
  Transmission Date: 20251020
  Serious: No
  Sender: AUROBINDO
  Company Number: US-AUROBINDO-AUR-APL-2024-055252

PATIENT
  Age: 90 Year
  Sex: Female
  Weight: 54.422 kg

DRUGS (1)
  1. ALENDRONATE SODIUM [Suspect]
     Active Substance: ALENDRONATE SODIUM
     Indication: Urinary incontinence
     Route: 065

REACTIONS (1)
  - Wrong technique in product usage process [Unknown]
